FAERS Safety Report 8927360 (Version 4)
Quarter: 2013Q1

REPORT INFORMATION
  Report Type: Spontaneous
  Country: JP (occurrence: JP)
  Receive Date: 20121127
  Receipt Date: 20130204
  Transmission Date: 20140127
  Serious: Yes (Hospitalization, Other)
  Sender: FDA-Public Use
  Company Number: JP-ASTRAZENECA-2012SE88983

PATIENT
  Age: 23 Year
  Sex: Female
  Weight: 52.2 kg

DRUGS (9)
  1. SEROQUEL [Suspect]
     Indication: SCHIZOPHRENIA
     Dosage: 200 MG DAILY, DIVIDED  IN THREE SEPARATE DOSES
     Route: 048
     Dates: start: 20120918, end: 20120919
  2. SEROQUEL [Suspect]
     Indication: SCHIZOPHRENIA
     Dosage: 100 MG DAILY  DIVIDED  IN THREE SEPARATE DOSES
     Route: 048
     Dates: start: 20120920, end: 20120925
  3. SEROQUEL [Suspect]
     Indication: SCHIZOPHRENIA
     Route: 048
     Dates: start: 20120926
  4. ABILIFY [Suspect]
     Indication: SCHIZOPHRENIA
     Route: 048
     Dates: start: 20090827, end: 20120815
  5. ABILIFY [Suspect]
     Indication: SCHIZOPHRENIA
     Route: 048
     Dates: start: 20120816, end: 20120830
  6. ABILIFY [Suspect]
     Indication: SCHIZOPHRENIA
     Route: 048
     Dates: start: 20120916, end: 20120917
  7. RIVOTRIL [Suspect]
     Indication: SCHIZOPHRENIA
     Route: 048
     Dates: start: 20120816, end: 20120917
  8. RIVOTRIL [Suspect]
     Indication: SCHIZOPHRENIA
     Route: 048
     Dates: start: 20120918, end: 20120919
  9. RIVOTRIL [Suspect]
     Indication: SCHIZOPHRENIA
     Route: 048
     Dates: start: 20120920

REACTIONS (3)
  - Thyroiditis [Recovered/Resolved]
  - Eye movement disorder [Recovered/Resolved]
  - Somnolence [Unknown]
